FAERS Safety Report 24467617 (Version 1)
Quarter: 2024Q4

REPORT INFORMATION
  Report Type: Spontaneous
  Country: US (occurrence: US)
  Receive Date: 20241018
  Receipt Date: 20241018
  Transmission Date: 20250115
  Serious: No
  Sender: ROCHE
  Company Number: US-ROCHE-3555000

PATIENT
  Sex: Female

DRUGS (2)
  1. XOLAIR [Suspect]
     Active Substance: OMALIZUMAB
     Indication: Idiopathic urticaria
     Route: 058
     Dates: start: 2021
  2. XOLAIR [Suspect]
     Active Substance: OMALIZUMAB
     Route: 058

REACTIONS (5)
  - Product dose omission issue [Unknown]
  - Product quality issue [Unknown]
  - Exposure via skin contact [Unknown]
  - Rash [Unknown]
  - Product knowledge deficit [Unknown]

NARRATIVE: CASE EVENT DATE: 20240426
